FAERS Safety Report 7364476-2 (Version None)
Quarter: 2011Q1

REPORT INFORMATION
  Report Type: 
  Country: None (occurrence: None)
  Receive Date: 20110321
  Receipt Date: 20110310
  Transmission Date: 20110831
  Serious: Yes (Life-Threatening, Hospitalization)
  Sender: FDA-Public Use
  Company Number: ZA-BRISTOL-MYERS SQUIBB COMPANY-15606791

PATIENT
  Age: 44 Year
  Sex: Male
  Weight: 68 kg

DRUGS (7)
  1. ATENOLOL [Suspect]
     Indication: HYPERTENSION
     Route: 048
     Dates: start: 20080101
  2. ENALAPRIL [Concomitant]
     Indication: HYPERTENSION
     Route: 048
     Dates: start: 20080101, end: 20110309
  3. EFAVIRENZ [Suspect]
     Indication: HIV INFECTION
     Dosage: HS
     Route: 048
     Dates: start: 20090219
  4. LAMIVUDINE [Suspect]
     Indication: HIV INFECTION
     Route: 048
     Dates: start: 20090325, end: 20110309
  5. STAVUDINE [Suspect]
     Indication: HIV INFECTION
     Route: 048
     Dates: start: 20090325
  6. HYDROCHLOROTHIAZIDE [Suspect]
     Indication: HYPERTENSION
     Dosage: TABS
     Route: 048
     Dates: start: 20080101
  7. ASPIRIN [Concomitant]
     Indication: HYPERTENSION
     Route: 048
     Dates: start: 20080101, end: 20110309

REACTIONS (1)
  - HYPERGLYCAEMIA [None]
